FAERS Safety Report 8806083 (Version 2)
Quarter: 2012Q4

REPORT INFORMATION
  Report Type: Spontaneous
  Country: US (occurrence: None)
  Receive Date: 20120917
  Receipt Date: 20120919
  Transmission Date: 20130627
  Serious: Yes (Other)
  Sender: FDA-Public Use
  Company Number: ACO_31504_2012

PATIENT
  Age: 45 Year
  Sex: Female
  Weight: 82.1 kg

DRUGS (38)
  1. AMPYRA [Suspect]
     Indication: GAIT DISTURBANCE
     Route: 048
     Dates: start: 2012
  2. OMEPRAZOLE (OMEPRAZOLE) [Concomitant]
  3. WELLBUTRIN (BUPROPION HYDROCHLORIDE) [Concomitant]
  4. TRICOR (FENOFIBRATE) [Concomitant]
  5. TRAZODONE HCL (TRAZODONE HYDROCHLORIDE) [Concomitant]
  6. MAXALT /01406501/ (RIZATRIPTAN) [Concomitant]
  7. GLUCOPHAGE (METFORMIN HYDROCHLORIDE) [Concomitant]
  8. FOSAMAX (ALENDRONATE SODIUM) [Concomitant]
  9. ARMOUR THYROID (THYROID) [Concomitant]
  10. AMBIEN (ZOLPIDEM TARTRATE) [Concomitant]
  11. LORTAB /00607101/ (HYDROCODONE BITARTRATE, PARACETAMOL) [Concomitant]
  12. MIGRANAL (DIHYDROEROGOTAMINE MESILATE) [Concomitant]
  13. LYRICA (PREGABALIN) [Concomitant]
  14. XANAX (ALPRAZOLAM) [Concomitant]
  15. LIDODERM (LIDOCAINE) [Concomitant]
  16. TRILEPTAL (OXCARBAZEPINE) [Concomitant]
  17. NEURONTIN (GABAPENTIN) [Concomitant]
  18. CYMBALTA (DULOXETINE HYDROCHLORIDE) [Concomitant]
  19. PREDNISONE (PREDNISONE) [Concomitant]
  20. AMITIZA (LUBIPROSTONE) [Concomitant]
  21. PLAQUENIL (HYDROXYCHLOROQUINE SULFATE) [Concomitant]
  22. MULTIVITAMIN (VITAMINS NOS) [Concomitant]
  23. MAGNESIUM OXIDE (MAGNESIUM OXIDE) [Concomitant]
  24. IMMUNE GLOBULIN (IMMUNOGLOBULINS NOS) [Concomitant]
  25. GABAPENTIN W/LIDOCAINE/KETOPROFEN (GABAPENTIN, KETOPROFEN, LIDOCAINE) [Concomitant]
  26. FISH OIL (FISH OIL) [Concomitant]
  27. EVOXAC (CEVIMELINE HYDROCHLORIDE) [Concomitant]
  28. ELMIRON (PENTOSAN POLYSULFATE SODIUM) [Concomitant]
  29. DOMPERIDONE (DOMPERIDONE) [Concomitant]
  30. COLACE (DOCUSATE SODIUM) [Concomitant]
  31. BUPIVACAINE (BUPIVACAINE HYDROCHLORIDE) [Concomitant]
  32. BOTOX [Concomitant]
  33. BACLOFEN (BACLOFEN) [Concomitant]
  34. FLOMAX /01280302/ (TAMSULOSIN HYDROCHLORIDE) [Concomitant]
  35. INSULIN (INSULIN) [Concomitant]
  36. LOTRISONE (BETAMETHASONE DIPROPIONATE, CLOTRIMAZOLE) [Concomitant]
  37. NAPRELAN (NAPROXEN SODIUM) [Concomitant]
  38. PEPCID /00706001/(FAMOTIDINE) [Concomitant]

REACTIONS (6)
  - Alanine aminotransferase increased [None]
  - Aspartate aminotransferase increased [None]
  - Gamma-glutamyltransferase increased [None]
  - Blood uric acid decreased [None]
  - Blood sodium decreased [None]
  - Fatigue [None]
